FAERS Safety Report 8563557-5 (Version None)
Quarter: 2012Q3

REPORT INFORMATION
  Report Type: 
  Country: None (occurrence: None)
  Receive Date: 20120803
  Receipt Date: 20120723
  Transmission Date: 20120928
  Serious: Yes (Other)
  Sender: FDA-Public Use
  Company Number: US-009507513-1204USA03609

PATIENT

DRUGS (6)
  1. AMPYRA [Suspect]
     Dosage: UNK MG, UNK
     Route: 048
     Dates: end: 20111101
  2. ZOCOR [Suspect]
     Indication: BLOOD CHOLESTEROL INCREASED
     Route: 048
     Dates: end: 20111101
  3. BUPROPION HYDROCHLORIDE [Suspect]
     Indication: DEPRESSION
     Dosage: UNK UNK, QD
     Dates: end: 20111101
  4. GABAPENTIN [Suspect]
     Dosage: 6 IN ONE DAY, 6 DF QD
     Dates: end: 20111101
  5. DIAZEPAM [Suspect]
     Indication: MUSCLE SPASMS
     Dosage: UNK
     Dates: end: 20111101
  6. REBIF [Suspect]
     Indication: MULTIPLE SCLEROSIS
     Dates: start: 20110120

REACTIONS (7)
  - SUICIDAL IDEATION [None]
  - MENTAL DISORDER [None]
  - MOTOR DYSFUNCTION [None]
  - URINARY INCONTINENCE [None]
  - EYE MOVEMENT DISORDER [None]
  - CONVULSION [None]
  - FEELING ABNORMAL [None]
